FAERS Safety Report 5508071-6 (Version None)
Quarter: 2007Q4

REPORT INFORMATION
  Report Type: 
  Country: None (occurrence: None)
  Receive Date: 20071106
  Receipt Date: 20071030
  Transmission Date: 20080405
  Serious: Yes (Congenital Anomaly)
  Sender: FDA-Public Use
  Company Number: DE-SHR-DE-2007-014882

PATIENT

DRUGS (1)
  1. MIRENA [Suspect]

REACTIONS (2)
  - CONGENITAL CLEFT HAND [None]
  - DRUG EXPOSURE DURING PREGNANCY [None]
